FAERS Safety Report 8169247-5 (Version None)
Quarter: 2012Q1

REPORT INFORMATION
  Report Type: 
  Country: None (occurrence: None)
  Receive Date: 20120228
  Receipt Date: 20120221
  Transmission Date: 20120608
  Serious: Yes (Death, Other)
  Sender: FDA-Public Use
  Company Number: GB-BRISTOL-MYERS SQUIBB COMPANY-16411712

PATIENT

DRUGS (1)
  1. IPILIMUMAB [Suspect]
     Dosage: LAST COURSE IN JAN2012 COURSES:4
     Dates: end: 20120101

REACTIONS (2)
  - SUDDEN DEATH [None]
  - DIARRHOEA [None]
